FAERS Safety Report 19547659 (Version 1)
Quarter: 2021Q3

REPORT INFORMATION
  Report Type: Spontaneous
  Country: US (occurrence: US)
  Receive Date: 20210714
  Receipt Date: 20210714
  Transmission Date: 20211014
  Serious: Yes (Hospitalization)
  Sender: FDA-Public Use
  Company Number: None

PATIENT
  Age: 60 Year
  Sex: Male

DRUGS (22)
  1. DULOXETINE. [Concomitant]
     Active Substance: DULOXETINE
  2. PREDNISONE. [Concomitant]
     Active Substance: PREDNISONE
  3. TRESIBA [Concomitant]
     Active Substance: INSULIN DEGLUDEC
  4. GABAPENTIN. [Concomitant]
     Active Substance: GABAPENTIN
  5. ACYCLOVIR. [Concomitant]
     Active Substance: ACYCLOVIR
  6. ATORVASTATIN [Concomitant]
     Active Substance: ATORVASTATIN
  7. BUPROPION. [Concomitant]
     Active Substance: BUPROPION
  8. ARIPIPRAZOLE. [Concomitant]
     Active Substance: ARIPIPRAZOLE
  9. OXYCODONE [Concomitant]
     Active Substance: OXYCODONE
  10. TRAZODONE [Concomitant]
     Active Substance: TRAZODONE HYDROCHLORIDE
  11. FEROSUL [Concomitant]
     Active Substance: FERROUS SULFATE
  12. AMITRIPTYLIN [Concomitant]
     Active Substance: AMITRIPTYLINE
  13. CHOLESTYRAM [Concomitant]
     Active Substance: CHOLESTYRAMINE
  14. OXYBUTYNIN. [Concomitant]
     Active Substance: OXYBUTYNIN CHLORIDE
  15. CYANOCOBALAM [Concomitant]
     Active Substance: CYANOCOBALAMIN
  16. AMIODARONE [Concomitant]
     Active Substance: AMIODARONE
  17. WARFARIN [Concomitant]
     Active Substance: WARFARIN
  18. STELARA [Suspect]
     Active Substance: USTEKINUMAB
     Indication: CROHN^S DISEASE
     Dosage: ?          OTHER FREQUENCY:EVERY 8 WEEKS;?
     Route: 058
     Dates: start: 20200729
  19. ENOXAPARIN [Concomitant]
     Active Substance: ENOXAPARIN
  20. TAMSULOSIN [Concomitant]
     Active Substance: TAMSULOSIN
  21. PANTOPRAZOLE [Concomitant]
     Active Substance: PANTOPRAZOLE
  22. METHADONE [Concomitant]
     Active Substance: METHADONE HYDROCHLORIDE

REACTIONS (4)
  - Depression [None]
  - Abdominal pain [None]
  - Cholecystectomy [None]
  - Diarrhoea [None]
